FAERS Safety Report 6534746-6 (Version None)
Quarter: 2010Q1

REPORT INFORMATION
  Report Type: 
  Country: None (occurrence: None)
  Receive Date: 20100112
  Receipt Date: 20100107
  Transmission Date: 20100710
  Serious: Yes (Death, Hospitalization)
  Sender: FDA-Public Use
  Company Number: US-CELGENEUS-163-21880-09110101

PATIENT
  Sex: Female

DRUGS (2)
  1. REVLIMID [Suspect]
     Route: 048
     Dates: start: 20080201, end: 20090101
  2. REVLIMID [Suspect]
     Route: 048
     Dates: start: 20080101, end: 20080101

REACTIONS (1)
  - RENAL FAILURE [None]
